FAERS Safety Report 6521321-2 (Version None)
Quarter: 2009Q4

REPORT INFORMATION
  Report Type: 
  Country: None (occurrence: None)
  Receive Date: 20091230
  Receipt Date: 20091222
  Transmission Date: 20100525
  Serious: Yes (Hospitalization)
  Sender: FDA-Public Use
  Company Number: BR-BAYER-200917360LA

PATIENT
  Age: 44 Year
  Sex: Female

DRUGS (7)
  1. BETAFERON [Suspect]
     Indication: MULTIPLE SCLEROSIS
     Route: 058
     Dates: start: 19980101, end: 20071101
  2. BETAFERON [Suspect]
     Dosage: TOTAL DAILY DOSE: 8 MIU
     Route: 058
     Dates: start: 20080525, end: 20091201
  3. BETAFERON [Suspect]
     Dosage: TOTAL DAILY DOSE: 8 MIU
     Route: 058
     Dates: start: 20091201
  4. FLUOXETINE [Concomitant]
     Indication: DEPRESSION
     Dosage: TOTAL DAILY DOSE: 20 MG
     Route: 048
     Dates: start: 19980101
  5. SIBUTRAMINE [Concomitant]
     Indication: DEPRESSION
     Route: 048
     Dates: start: 20040101
  6. METHOTREXATE [Concomitant]
     Indication: MULTIPLE SCLEROSIS
     Route: 048
     Dates: start: 19990101
  7. BUPROPION HCL [Concomitant]
     Indication: ANTIDEPRESSANT THERAPY
     Route: 048
     Dates: start: 19960101

REACTIONS (7)
  - BALANCE DISORDER [None]
  - FALL [None]
  - GAIT DISTURBANCE [None]
  - HOSPITALISATION [None]
  - MULTIPLE SCLEROSIS RELAPSE [None]
  - MUSCULAR WEAKNESS [None]
  - WRIST FRACTURE [None]
